FAERS Safety Report 16914936 (Version 5)
Quarter: 2020Q1

REPORT INFORMATION
  Report Type: Spontaneous
  Country: US (occurrence: US)
  Receive Date: 20191014
  Receipt Date: 20200313
  Transmission Date: 20200409
  Serious: Yes (Hospitalization, Other)
  Sender: FDA-Public Use
  Company Number: US-PFIZER INC-2019439650

PATIENT
  Age: 12 Year
  Sex: Female
  Weight: 31.74 kg

DRUGS (4)
  1. GENOTROPIN MQ [Suspect]
     Active Substance: SOMATROPIN
     Indication: GROWTH HORMONE DEFICIENCY
     Dosage: 0.6 MG, DAILY
     Dates: start: 201910, end: 20191105
  2. GENOTROPIN MQ [Suspect]
     Active Substance: SOMATROPIN
     Dosage: 40 MG, 1X/DAY
     Dates: start: 201910
  3. GENOTROPIN MQ [Suspect]
     Active Substance: SOMATROPIN
     Dosage: 0.4 MG, DAILY
     Dates: start: 20191020
  4. ESTROGEN [Concomitant]
     Active Substance: ESTROGENS
     Dosage: UNK (PATCH)
     Dates: start: 2019

REACTIONS (3)
  - Headache [Recovered/Resolved]
  - Prescribed overdose [Unknown]
  - Medulloblastoma [Recovered/Resolved]

NARRATIVE: CASE EVENT DATE: 201910
